FAERS Safety Report 4740606-3 (Version None)
Quarter: 2005Q3

REPORT INFORMATION
  Report Type: 
  Country: None (occurrence: None)
  Receive Date: 20050801
  Receipt Date: 20050201
  Transmission Date: 20060218
  Serious: Yes (Other)
  Sender: FDA-Public Use
  Company Number: 2005-02-0224

PATIENT
  Sex: Female

DRUGS (4)
  1. INTRON A [Suspect]
     Indication: HEPATITIS C
  2. RIBAVIRIN [Suspect]
     Indication: HEPATITIS C
     Dosage: ORAL
     Route: 048
  3. PROCRIT [Suspect]
     Indication: ANAEMIA
     Dosage: 1000 U  3X/WK  (DURATION: 6 DOSE(S) )
  4. PEGASYS [Suspect]
     Indication: HEPATITIS C
     Dosage: DURATION:  ONE DOSE(S)

REACTIONS (6)
  - ANAEMIA [None]
  - ARTHRALGIA [None]
  - DIABETES MELLITUS [None]
  - RASH [None]
  - TONGUE BLACK HAIRY [None]
  - URTICARIA [None]
